FAERS Safety Report 4690695-X (Version None)
Quarter: 2005Q2

REPORT INFORMATION
  Report Type: 
  Country: None (occurrence: None)
  Receive Date: 20050613
  Receipt Date: 20050531
  Transmission Date: 20051028
  Serious: Yes (Death, Hospitalization, Other)
  Sender: FDA-Public Use
  Company Number: 2005076924

PATIENT
  Age: 54 Year
  Sex: Female
  Weight: 68 kg

DRUGS (3)
  1. FELDENE [Suspect]
     Indication: MYALGIA
     Dosage: 20 MG (20 MG, 1 IN 1 D), ORAL
     Route: 048
     Dates: start: 20050517, end: 20050517
  2. FELDENE [Suspect]
     Indication: PYREXIA
     Dosage: 20 MG (20 MG, 1 IN 1 D), ORAL
     Route: 048
     Dates: start: 20050517, end: 20050517
  3. ACETAMINOPHEN [Concomitant]

REACTIONS (6)
  - ANURIA [None]
  - APLASTIC ANAEMIA [None]
  - HAEMORRHAGE [None]
  - NEPHRITIS [None]
  - PNEUMOCOCCAL SEPSIS [None]
  - SEPTIC SHOCK [None]
